FAERS Safety Report 20597766 (Version 5)
Quarter: 2022Q2

REPORT INFORMATION
  Report Type: Spontaneous
  Country: CZ (occurrence: CZ)
  Receive Date: 20220315
  Receipt Date: 20220422
  Transmission Date: 20220721
  Serious: Yes (Other)
  Sender: FDA-Public Use
  Company Number: CZ-SAMSUNG BIOEPIS-SB-2022-02835

PATIENT
  Age: 49 Year
  Sex: Female

DRUGS (4)
  1. ADALIMUMAB [Suspect]
     Active Substance: ADALIMUMAB
     Indication: Psoriasis
     Dosage: UNK
     Route: 065
  2. ADALIMUMAB [Suspect]
     Active Substance: ADALIMUMAB
     Indication: Psoriatic arthropathy
     Dosage: UNK
  3. CALCIPOTRIENE [Suspect]
     Active Substance: CALCIPOTRIENE
     Indication: Rash pustular
     Dosage: UNK
     Route: 061
  4. BETAMETHASONE [Suspect]
     Active Substance: BETAMETHASONE
     Indication: Rash pustular
     Dosage: UNK, UNKNOWN, FOAM

REACTIONS (4)
  - Psoriatic arthropathy [Recovering/Resolving]
  - Palmoplantar pustulosis [Recovered/Resolved]
  - Paradoxical drug reaction [Recovered/Resolved]
  - Psoriasis [Recovering/Resolving]
